FAERS Safety Report 4635323-4 (Version None)
Quarter: 2005Q2

REPORT INFORMATION
  Report Type: 
  Country: None (occurrence: None)
  Receive Date: 20050411
  Receipt Date: 20040628
  Transmission Date: 20051028
  Serious: Yes (Death)
  Sender: FDA-Public Use
  Company Number: 8318

PATIENT

DRUGS (9)
  1. PACLIATAXEL [Suspect]
     Indication: SMALL CELL LUNG CANCER STAGE UNSPECIFIED
     Dosage: 175 MG/M2 PER_CYCLE IV
     Route: 042
  2. TOPOTECAN [Suspect]
     Indication: SMALL CELL LUNG CANCER STAGE UNSPECIFIED
     Dosage: 5 MG/M2 PER _CYCLE IV
     Route: 042
  3. CARBOPLATIN [Suspect]
     Indication: SMALL CELL LUNG CANCER STAGE UNSPECIFIED
     Dosage: 5 AUC PER_CYCLE IV
     Route: 042
  4. ETOPOSIDE [Suspect]
     Indication: SMALL CELL LUNG CANCER STAGE UNSPECIFIED
     Dosage: 300 MG/M2 PER_CYCLE IV
     Route: 042
  5. DEXAMETHASONE [Concomitant]
  6. DIPHENHYDRAMINE HCL [Concomitant]
  7. CIMETIDINE [Concomitant]
  8. SUCRALFATE [Concomitant]
  9. GRANULOCYTE-COLONY STIMULATING FACTOR [Concomitant]

REACTIONS (1)
  - EXSANGUINATION [None]
